FAERS Safety Report 5988336-4 (Version None)
Quarter: 2008Q4

REPORT INFORMATION
  Report Type: 
  Country: None (occurrence: None)
  Receive Date: 20081204
  Receipt Date: 20081125
  Transmission Date: 20090506
  Serious: Yes (Other)
  Sender: FDA-Public Use
  Company Number: JPI-P-005368

PATIENT
  Age: 76 Year
  Sex: Male
  Weight: 73.4827 kg

DRUGS (14)
  1. XYREM [Suspect]
     Indication: SLEEP APNOEA SYNDROME
     Dosage: 4.5 GM (2.25 GM, 2 IN 1 D), ORAL; 4.5 GM (2.25 GM, 2 IN 1 D), ORAL
     Route: 048
     Dates: start: 20081021, end: 20081026
  2. XYREM [Suspect]
     Indication: SLEEP APNOEA SYNDROME
     Dosage: 4.5 GM (2.25 GM, 2 IN 1 D), ORAL; 4.5 GM (2.25 GM, 2 IN 1 D), ORAL
     Route: 048
     Dates: start: 20081112, end: 20081123
  3. ROPINIROLE HYDROCHLORIDE [Concomitant]
  4. ACETYLSALICYLIC ACID [Concomitant]
  5. SIMVASTATIN [Concomitant]
  6. LEVOTHYROXINE SODIUM [Concomitant]
  7. FUROSEMIDE [Concomitant]
  8. POTASSIUM CHLORIDE [Concomitant]
  9. CLOPIDOGREL BISULFATE [Concomitant]
  10. DILTIAZEM [Concomitant]
  11. FISH OIL [Concomitant]
  12. FOLACIN, CYANOCOBALAMIN + PYRIDOXINE [Concomitant]
  13. FIBER [Concomitant]
  14. STOOL SOFTENER [Concomitant]

REACTIONS (7)
  - CONDITION AGGRAVATED [None]
  - CORONARY ARTERY OCCLUSION [None]
  - DISORIENTATION [None]
  - DIZZINESS [None]
  - DYSPNOEA [None]
  - FEELING ABNORMAL [None]
  - SLEEP APNOEA SYNDROME [None]
